FAERS Safety Report 9523189 (Version 1)
Quarter: 2013Q3

REPORT INFORMATION
  Report Type: Spontaneous
  Country: NL (occurrence: NL)
  Receive Date: 20130913
  Receipt Date: 20130913
  Transmission Date: 20140515
  Serious: Yes (Life-Threatening)
  Sender: FDA-Public Use
  Company Number: NL-GLAXOSMITHKLINE-B0922181A

PATIENT
  Age: 26 Year
  Sex: Male
  Weight: 105 kg

DRUGS (2)
  1. SEROXAT [Suspect]
     Indication: DEPRESSION
     Dosage: 20MG PER DAY
     Route: 048
     Dates: start: 19960201
  2. ALCOHOLIC BEVERAGE [Concomitant]
     Route: 048

REACTIONS (1)
  - Aggression [Unknown]
